FAERS Safety Report 11276778 (Version 1)
Quarter: 2015Q3

REPORT INFORMATION
  Report Type: Spontaneous
  Country: CN (occurrence: CN)
  Receive Date: 20150716
  Receipt Date: 20150716
  Transmission Date: 20151125
  Serious: Yes (Hospitalization)
  Sender: FDA-Public Use
  Company Number: CN-PFIZER INC-2015237279

PATIENT
  Age: 61 Week
  Sex: Female
  Weight: 10 kg

DRUGS (4)
  1. SOLU-MEDROL [Suspect]
     Active Substance: METHYLPREDNISOLONE SODIUM SUCCINATE
     Indication: INFECTION
     Dosage: 10 MG, 1X/DAY
     Route: 041
     Dates: start: 20150304, end: 20150304
  2. SOLU-MEDROL [Suspect]
     Active Substance: METHYLPREDNISOLONE SODIUM SUCCINATE
     Indication: ASTHMA
  3. GLUCOSE [Concomitant]
     Active Substance: DEXTROSE
     Indication: INFECTION
  4. GLUCOSE [Concomitant]
     Active Substance: DEXTROSE
     Indication: ASTHMA
     Dosage: 50 ML, 1X/DAY
     Route: 041
     Dates: start: 20150304, end: 20150304

REACTIONS (1)
  - Flushing [Recovering/Resolving]

NARRATIVE: CASE EVENT DATE: 20150304
